FAERS Safety Report 13124871 (Version 2)
Quarter: 2017Q1

REPORT INFORMATION
  Report Type: Spontaneous
  Country: FR (occurrence: FR)
  Receive Date: 20170118
  Receipt Date: 20170313
  Transmission Date: 20170428
  Serious: Yes (Other)
  Sender: FDA-Public Use
  Company Number: FR-MUNDIPHARMA DS AND PHARMACOVIGILANCE-GBR-2017-0042786

PATIENT
  Age: 65 Year
  Sex: Female

DRUGS (16)
  1. DAFALGAN [Concomitant]
     Active Substance: ACETAMINOPHEN
  2. NOVORAPID [Concomitant]
     Active Substance: INSULIN ASPART
  3. BISOPROL [Concomitant]
  4. KARDEGIC [Concomitant]
     Active Substance: ASPIRIN LYSINE
  5. PANTOPRAZOLE [Concomitant]
     Active Substance: PANTOPRAZOLE SODIUM
  6. CEFEPIME [Suspect]
     Active Substance: CEFEPIME HYDROCHLORIDE
     Indication: DEVICE RELATED INFECTION
     Dosage: 2 G, Q12H (2G STRENGTH)
     Route: 041
     Dates: start: 20161205, end: 20161209
  7. LASILIX                            /00032601/ [Concomitant]
     Active Substance: FUROSEMIDE
  8. LEVOTHYROX [Concomitant]
     Active Substance: LEVOTHYROXINE
  9. VANCOMYCINE [Suspect]
     Active Substance: VANCOMYCIN
     Indication: DEVICE RELATED INFECTION
     Dosage: 2 MG, Q1H (500MG STRENGTH)
     Route: 041
     Dates: start: 20161205, end: 20161209
  10. GENTAMICINE [Suspect]
     Active Substance: GENTAMICIN
     Indication: DEVICE RELATED INFECTION
     Dosage: 640 MG, TOTAL
     Route: 042
     Dates: start: 20161205, end: 20161205
  11. LYRICA [Suspect]
     Active Substance: PREGABALIN
     Indication: PRODUCT USED FOR UNKNOWN INDICATION
     Dosage: UNK
     Route: 048
     Dates: end: 20161213
  12. TAHOR [Suspect]
     Active Substance: ATORVASTATIN CALCIUM
     Indication: PRODUCT USED FOR UNKNOWN INDICATION
     Dosage: UNK
     Route: 048
     Dates: end: 20161212
  13. CORDARONE [Concomitant]
     Active Substance: AMIODARONE HYDROCHLORIDE
  14. OXYCONTIN [Suspect]
     Active Substance: OXYCODONE HYDROCHLORIDE
     Indication: PRODUCT USED FOR UNKNOWN INDICATION
     Dosage: UNK
     Route: 048
     Dates: end: 20161211
  15. IKOREL [Concomitant]
     Active Substance: NICORANDIL
  16. ZYMAD [Concomitant]
     Active Substance: CHOLECALCIFEROL

REACTIONS (3)
  - Acute kidney injury [Recovering/Resolving]
  - Encephalopathy [Recovered/Resolved]
  - Myoclonus [Recovered/Resolved]

NARRATIVE: CASE EVENT DATE: 201612
